FAERS Safety Report 14308339 (Version 4)
Quarter: 2018Q1

REPORT INFORMATION
  Report Type: Spontaneous
  Country: CH (occurrence: CH)
  Receive Date: 20171220
  Receipt Date: 20180307
  Transmission Date: 20180509
  Serious: Yes (Death, Other)
  Sender: FDA-Public Use
  Company Number: CH-BAYER-2017-239994

PATIENT
  Age: 51 Year
  Sex: Male

DRUGS (7)
  1. DILATREND [Concomitant]
     Active Substance: CARVEDILOL
     Indication: VARICES OESOPHAGEAL
     Dosage: 6.25 MG, QD
  2. MAGNESIUM DIASPORAL [MAGNESIUM CITRATE] [Concomitant]
     Dosage: 100 MG, QD
  3. TOREM [Concomitant]
     Active Substance: TORSEMIDE
     Dosage: 5 MG, QD
  4. NOVALGIN (METAMIZOLE SODIUM) [Concomitant]
     Active Substance: METAMIZOLE SODIUM
     Dosage: 500 MG, UNK
  5. STIVARGA [Suspect]
     Active Substance: REGORAFENIB
     Indication: HEPATOCELLULAR CARCINOMA
     Dosage: FIRST: 40 MG IN THE MORNING; THEN: UP TO 3X 40 MG
     Route: 048
     Dates: start: 201706, end: 20170625
  6. CARVEDILOL. [Concomitant]
     Active Substance: CARVEDILOL
     Dosage: 12.5 MG, UNK
     Dates: start: 20170607
  7. FLATULEX [Concomitant]
     Active Substance: ACTIVATED CHARCOAL\DIMETHICONE
     Dosage: 20 GTT, PRN

REACTIONS (10)
  - Asthenia [None]
  - Haemoglobin decreased [Fatal]
  - Ocular icterus [None]
  - Fatigue [None]
  - Diarrhoea [None]
  - Shock haemorrhagic [Fatal]
  - General physical health deterioration [Fatal]
  - Ascites [None]
  - Oedema peripheral [None]
  - Abdominal pain upper [Fatal]

NARRATIVE: CASE EVENT DATE: 201706
